FAERS Safety Report 7235583-X (Version None)
Quarter: 2011Q1

REPORT INFORMATION
  Report Type: 
  Country: None (occurrence: None)
  Receive Date: 20110120
  Receipt Date: 20110113
  Transmission Date: 20110831
  Serious: No
  Sender: FDA-Public Use
  Company Number: US-PFIZER INC-2011011946

PATIENT
  Age: 60 Year
  Sex: Female

DRUGS (1)
  1. ADVIL PM [Suspect]
     Indication: OROPHARYNGEAL PAIN
     Dosage: UNK
     Route: 048
     Dates: start: 20110111, end: 20110111

REACTIONS (2)
  - TINNITUS [None]
  - INCORRECT DOSE ADMINISTERED [None]
